FAERS Safety Report 22017619 (Version 1)
Quarter: 2023Q1

REPORT INFORMATION
  Report Type: Spontaneous
  Country: US (occurrence: None)
  Receive Date: 20230221
  Receipt Date: 20230221
  Transmission Date: 20230417
  Serious: Yes (Other)
  Sender: FDA-Public Use
  Company Number: 2023A037265

PATIENT
  Age: 27939 Day
  Sex: Female

DRUGS (1)
  1. BYDUREON BCISE [Suspect]
     Active Substance: EXENATIDE
     Indication: Type 2 diabetes mellitus
     Dosage: 2MG/ML ONCE A WEEK
     Route: 058

REACTIONS (10)
  - Colon cancer [Unknown]
  - Myocardial infarction [Unknown]
  - Spinal fracture [Unknown]
  - Device use issue [Unknown]
  - Limb discomfort [Unknown]
  - Fungal infection [Unknown]
  - Blood glucose abnormal [Unknown]
  - Anxiety [Unknown]
  - Weight decreased [Unknown]
  - Injection site haemorrhage [Unknown]

NARRATIVE: CASE EVENT DATE: 20230212
